FAERS Safety Report 12832674 (Version 1)
Quarter: 2016Q4

REPORT INFORMATION
  Report Type: Report from Study
  Country: US (occurrence: US)
  Receive Date: 20161010
  Receipt Date: 20161010
  Transmission Date: 20170207
  Serious: Yes (Hospitalization, Other)
  Sender: FDA-Public Use
  Company Number: PHEH2016US025607

PATIENT
  Age: 35 Year
  Sex: Female

DRUGS (4)
  1. VALIUM [Suspect]
     Active Substance: DIAZEPAM
     Indication: SEIZURE
     Dosage: UNK
     Route: 065
  2. ATIVAN [Suspect]
     Active Substance: LORAZEPAM
     Indication: GENERALISED TONIC-CLONIC SEIZURE
  3. GILENYA [Suspect]
     Active Substance: FINGOLIMOD HYDROCHLORIDE
     Indication: MULTIPLE SCLEROSIS
     Dosage: UNK
     Route: 065
     Dates: start: 20160321
  4. ATIVAN [Suspect]
     Active Substance: LORAZEPAM
     Indication: SEIZURE
     Dosage: UNK
     Route: 065

REACTIONS (9)
  - Personality disorder [Unknown]
  - Seizure [Unknown]
  - Micturition disorder [Unknown]
  - Feeling abnormal [Unknown]
  - Generalised tonic-clonic seizure [Recovered/Resolved]
  - Renal failure [Unknown]
  - Posterior reversible encephalopathy syndrome [Unknown]
  - Blindness [Unknown]
  - Impatience [Unknown]

NARRATIVE: CASE EVENT DATE: 20160921
